FAERS Safety Report 6442691-X (Version None)
Quarter: 2009Q4

REPORT INFORMATION
  Report Type: 
  Country: None (occurrence: None)
  Receive Date: 20091112
  Receipt Date: 20091106
  Transmission Date: 20100525
  Serious: Yes (Death)
  Sender: FDA-Public Use
  Company Number: 2009SP035258

PATIENT
  Age: 60 Year
  Sex: Female

DRUGS (6)
  1. MIRTAZAPINE [Suspect]
     Indication: DEPRESSION
     Dosage: 15 MG; QD; PO
     Route: 048
     Dates: start: 20091022
  2. MIRTAZAPINE [Suspect]
     Indication: INSOMNIA
     Dosage: 15 MG; QD; PO
     Route: 048
     Dates: start: 20091022
  3. ZOLPIDEM TARTRATE [Suspect]
     Indication: DRUG USE FOR UNKNOWN INDICATION
     Dosage: 10 MG;QD;PO
     Route: 048
     Dates: start: 20090925
  4. LUNITRAZEPAM (FLUNITRAZEPAM) [Suspect]
     Indication: DRUG USE FOR UNKNOWN INDICATION
     Dosage: 1 MG;QD;PO
     Route: 048
     Dates: start: 20091022
  5. PAROXETINE HYDROCHLORIDE [Concomitant]
  6. BROTIZOLAM [Concomitant]

REACTIONS (5)
  - COMPLETED SUICIDE [None]
  - FEELING ABNORMAL [None]
  - HALLUCINATION, VISUAL [None]
  - INSOMNIA [None]
  - PAIN [None]
